FAERS Safety Report 10819234 (Version 1)
Quarter: 2015Q1

REPORT INFORMATION
  Report Type: Report from Study
  Country: US (occurrence: None)
  Receive Date: 20150213
  Receipt Date: 20150213
  Transmission Date: 20150721
  Serious: Yes (Hospitalization)
  Sender: FDA-Public Use
  Company Number: 2015BI013683

PATIENT
  Age: 43 Year
  Sex: Female

DRUGS (2)
  1. TECFIDERA [Suspect]
     Active Substance: DIMETHYL FUMARATE
     Indication: MULTIPLE SCLEROSIS
  2. AVONEX [Concomitant]
     Active Substance: INTERFERON BETA-1A

REACTIONS (13)
  - Central nervous system lesion [None]
  - Peripheral nerve decompression [None]
  - Eye disorder [None]
  - Hypoaesthesia [None]
  - Flushing [None]
  - Optic neuritis [None]
  - Influenza [None]
  - Condition aggravated [None]
  - Aggression [None]
  - Gait disturbance [None]
  - Balance disorder [None]
  - Nausea [None]
  - Muscular weakness [None]

NARRATIVE: CASE EVENT DATE: 2013
